FAERS Safety Report 6915994-X (Version None)
Quarter: 2010Q3

REPORT INFORMATION
  Report Type: 
  Country: None (occurrence: None)
  Receive Date: 20100805
  Receipt Date: 20100722
  Transmission Date: 20110219
  Serious: Yes (Death)
  Sender: FDA-Public Use
  Company Number: 1-22795175

PATIENT
  Age: 57 Year
  Sex: Female
  Weight: 58.0604 kg

DRUGS (11)
  1. FENTANYL-75 [Suspect]
     Indication: PAIN
     Dosage: 75MCG/HR, Q 72 HRS, TRANSDERMAL
     Route: 062
     Dates: start: 20100526
  2. FLAGYL [Concomitant]
  3. NEURONTIN [Concomitant]
  4. BACLOFEN [Concomitant]
  5. ASPIRIN [Concomitant]
  6. LISINOPRIL [Concomitant]
  7. XANAX [Concomitant]
  8. SOMA [Concomitant]
  9. VITAMIN D [Concomitant]
  10. MULTIVITAMIN DAILY [Concomitant]
  11. NEXIUM [Concomitant]

REACTIONS (9)
  - ABNORMAL BEHAVIOUR [None]
  - ACCIDENTAL OVERDOSE [None]
  - BACK PAIN [None]
  - DIZZINESS [None]
  - MASTECTOMY [None]
  - NAUSEA [None]
  - PAIN IN EXTREMITY [None]
  - PRODUCT ADHESION ISSUE [None]
  - SKIN EXFOLIATION [None]
